FAERS Safety Report 10180132 (Version 3)
Quarter: 2014Q3

REPORT INFORMATION
  Report Type: Spontaneous
  Country: US (occurrence: None)
  Receive Date: 20140515
  Receipt Date: 20140825
  Transmission Date: 20150326
  Serious: Yes (Hospitalization)
  Sender: FDA-Public Use
  Company Number: UTC-048543

PATIENT
  Age: 11 Year
  Sex: Female
  Weight: 37 kg

DRUGS (4)
  1. COUMADIN [Concomitant]
     Active Substance: WARFARIN SODIUM
  2. CLIALIS (TADALAFIL) [Concomitant]
  3. REMODULIN [Suspect]
     Active Substance: TREPROSTINIL
     Indication: PULMONARY ARTERIAL HYPERTENSION
     Route: 041
     Dates: start: 20140227
  4. TRACLEER [Concomitant]
     Active Substance: BOSENTAN\BOSENTAN MONOHYDRATE

REACTIONS (13)
  - Paraesthesia [None]
  - Device occlusion [None]
  - Dyspnoea [None]
  - Vision blurred [None]
  - Heart rate increased [None]
  - Presyncope [None]
  - Drug dose omission [None]
  - Tachycardia [None]
  - Pallor [None]
  - Pulmonary hypertension [None]
  - Fatigue [None]
  - Malaise [None]
  - Hypertensive crisis [None]

NARRATIVE: CASE EVENT DATE: 20140428
